FAERS Safety Report 9386047 (Version 2)
Quarter: 2013Q4

REPORT INFORMATION
  Report Type: Report from Study
  Country: AU (occurrence: AU)
  Receive Date: 20130705
  Receipt Date: 20131223
  Transmission Date: 20140711
  Serious: Yes (Hospitalization, Other)
  Sender: FDA-Public Use
  Company Number: AU-ELI_LILLY_AND_COMPANY-AU201306008571

PATIENT
  Age: 62 Year
  Sex: Female

DRUGS (4)
  1. LISPRO REGLISPRO [Suspect]
     Indication: TYPE 2 DIABETES MELLITUS
     Dosage: UNK UNK, SINGLE
     Route: 065
     Dates: start: 201304
  2. LISPRO 25LIS75NPL KWIKPEN / MIRIOPEN [Suspect]
     Indication: TYPE 2 DIABETES MELLITUS
     Dosage: 32 U, EACH MORNING
     Route: 065
     Dates: start: 201305
  3. LISPRO 25LIS75NPL KWIKPEN / MIRIOPEN [Suspect]
     Dosage: 40 U, EACH EVENING
     Route: 065
     Dates: start: 201305
  4. ACTILAX                            /00163401/ [Concomitant]

REACTIONS (3)
  - Syncope [Unknown]
  - Malaise [Unknown]
  - Wrong drug administered [Recovered/Resolved]
